FAERS Safety Report 9242322 (Version 2)
Quarter: 2013Q2

REPORT INFORMATION
  Report Type: Report from Study
  Country: US (occurrence: US)
  Receive Date: 20130419
  Receipt Date: 20130423
  Transmission Date: 20140414
  Serious: No
  Sender: FDA-Public Use
  Company Number: US-UCBSA-062807

PATIENT
  Age: 30 Year
  Sex: Female
  Weight: 77.1 kg

DRUGS (5)
  1. CIMZIA [Suspect]
     Indication: CROHN^S DISEASE
     Route: 058
     Dates: start: 20101230
  2. ZYRTEC [Concomitant]
  3. AZATHIOPRINE [Concomitant]
     Indication: CROHN^S DISEASE
     Dates: start: 20010711
  4. PRENATAL VITAMIN [Concomitant]
  5. FOLIC ACID [Concomitant]

REACTIONS (3)
  - Premature rupture of membranes [Recovered/Resolved]
  - Breast feeding [Unknown]
  - Pregnancy [Recovered/Resolved]
